FAERS Safety Report 12277929 (Version 1)
Quarter: 2016Q2

REPORT INFORMATION
  Report Type: Spontaneous
  Country: US (occurrence: US)
  Receive Date: 20160418
  Receipt Date: 20160418
  Transmission Date: 20160815
  Serious: No
  Sender: FDA-Public Use
  Company Number: US-MDT-ADR-2015-02457

PATIENT
  Age: 59 Year
  Sex: Male

DRUGS (4)
  1. LIORESAL [Suspect]
     Active Substance: BACLOFEN
     Dosage: 141.87 MCG/DAY
     Route: 037
  2. LISINOPRIL. [Suspect]
     Active Substance: LISINOPRIL
  3. FOLIC ACID. [Suspect]
     Active Substance: FOLIC ACID
  4. HYDROCODONE [Suspect]
     Active Substance: HYDROCODONE

REACTIONS (3)
  - Muscle spasticity [Unknown]
  - Rash [Unknown]
  - Dysstasia [Unknown]
